FAERS Safety Report 8184009-0 (Version None)
Quarter: 2012Q1

REPORT INFORMATION
  Report Type: 
  Country: None (occurrence: None)
  Receive Date: 20120305
  Receipt Date: 20120224
  Transmission Date: 20120608
  Serious: Yes (Hospitalization)
  Sender: FDA-Public Use
  Company Number: DE-ROCHE-1019695

PATIENT
  Sex: Male
  Weight: 140 kg

DRUGS (5)
  1. AVASTIN [Suspect]
     Indication: COLON CANCER
     Route: 042
     Dates: start: 20100928, end: 20110607
  2. FOLIC ACID [Suspect]
     Indication: COLON CANCER
     Route: 042
     Dates: start: 20100928, end: 20110607
  3. FLUOROURACIL [Suspect]
     Indication: COLON CANCER
     Route: 042
     Dates: start: 20100928, end: 20110607
  4. TINZAPARIN SODIUM [Suspect]
     Indication: PROPHYLAXIS
     Dates: start: 20101207
  5. IRINOTECAN HCL [Suspect]
     Indication: COLON CANCER
     Route: 042
     Dates: start: 20100928, end: 20110607

REACTIONS (2)
  - DEEP VEIN THROMBOSIS [None]
  - HIDRADENITIS [None]
